FAERS Safety Report 18609940 (Version 1)
Quarter: 2020Q4

REPORT INFORMATION
  Report Type: Spontaneous
  Country: US (occurrence: US)
  Receive Date: 20201211
  Receipt Date: 20201211
  Transmission Date: 20210114
  Serious: Yes (Hospitalization)
  Sender: FDA-Public Use
  Company Number: None

PATIENT
  Age: 46 Year
  Sex: Female

DRUGS (1)
  1. OPSUMIT [Suspect]
     Active Substance: MACITENTAN
     Indication: PULMONARY HYPERTENSION
     Route: 048
     Dates: start: 20200529

REACTIONS (5)
  - Nephrogenic anaemia [None]
  - Packed red blood cell transfusion [None]
  - Acute respiratory failure [None]
  - Headache [None]
  - Ophthalmic herpes zoster [None]

NARRATIVE: CASE EVENT DATE: 20201129
